FAERS Safety Report 12839887 (Version 2)
Quarter: 2020Q3

REPORT INFORMATION
  Report Type: Report from Study
  Country: KR (occurrence: KR)
  Receive Date: 20161012
  Receipt Date: 20161114
  Transmission Date: 20201104
  Serious: Yes (Death, Other)
  Sender: FDA-Public Use
  Company Number: KR-PFIZER INC-2016460408

PATIENT
  Age: 81 Year
  Sex: Male

DRUGS (34)
  1. CARBOPLATIN. [Suspect]
     Active Substance: CARBOPLATIN
     Dosage: AUC 5 MG/ML/MIN
     Route: 042
     Dates: start: 20160920
  2. ETOPOSIDE. [Suspect]
     Active Substance: ETOPOSIDE
     Dosage: 100 MG/M2, UNK
     Route: 042
     Dates: start: 20160726
  3. ETOPOSIDE. [Suspect]
     Active Substance: ETOPOSIDE
     Dosage: 100 MG/M2, UNK
     Route: 042
     Dates: start: 20160920
  4. MEDI4736 [Suspect]
     Active Substance: DURVALUMAB
     Dosage: 1.5 G, ONCE EVERY 4 WEEKS
     Route: 042
     Dates: start: 20160726
  5. MYPOL /00020001/ [Concomitant]
     Indication: CHEST PAIN
     Route: 048
     Dates: start: 20160705
  6. POLYCARBOPHIL CALCIUM [Concomitant]
     Active Substance: CALCIUM POLYCARBOPHIL
     Indication: CONSTIPATION
     Dosage: 625.00MGTID
     Route: 048
     Dates: start: 20160706
  7. CARBOPLATIN. [Suspect]
     Active Substance: CARBOPLATIN
     Indication: SMALL CELL LUNG CANCER
     Dosage: AUC 5 MG/ML/MIN
     Route: 042
     Dates: start: 20160705
  8. MEDI4736 [Suspect]
     Active Substance: DURVALUMAB
     Indication: SMALL CELL LUNG CANCER
     Dosage: 1.5 G, ONCE EVERY 4 WEEKS
     Route: 042
     Dates: start: 20160705
  9. ERDOSTEINE [Concomitant]
     Active Substance: ERDOSTEINE
     Indication: COUGH
     Dosage: 0.30GTID
     Route: 048
  10. LOPERAMIDE HCL [Concomitant]
     Active Substance: LOPERAMIDE HYDROCHLORIDE
     Indication: DIARRHOEA
     Dosage: 2.00MGTID
     Route: 048
     Dates: start: 20160816
  11. SUCRALFATE. [Concomitant]
     Active Substance: SUCRALFATE
     Indication: DYSPEPSIA
     Dosage: 1.00GQID
     Route: 048
     Dates: start: 20160826
  12. TREMELIMUMAB. [Suspect]
     Active Substance: TREMELIMUMAB
     Indication: SMALL CELL LUNG CANCER
     Dosage: 1.5 MG, ONCE EVERY 4 WEEKS
     Route: 042
     Dates: start: 20160705
  13. TAMSULOSIN HCL [Concomitant]
     Active Substance: TAMSULOSIN HYDROCHLORIDE
     Indication: PROPHYLAXIS
     Dosage: 0.20MGQD
     Route: 048
     Dates: start: 20160830
  14. IBUPROFEN. [Concomitant]
     Active Substance: IBUPROFEN
     Indication: CHEST PAIN
  15. FENTANYL. [Concomitant]
     Active Substance: FENTANYL
     Indication: CHEST PAIN
     Dosage: 2.10MGOTHER
     Route: 061
     Dates: start: 20160823
  16. CODEINE PHOSPHATE [Concomitant]
     Active Substance: CODEINE PHOSPHATE
     Indication: COUGH
     Dosage: 20 MG, 3X/DAY
     Route: 048
  17. AMLODIPINE BESYLATE. [Concomitant]
     Active Substance: AMLODIPINE BESYLATE
     Indication: HYPERTENSION
     Route: 048
  18. MAGNESIUM OXIDE. [Concomitant]
     Active Substance: MAGNESIUM OXIDE
     Indication: CONSTIPATION
     Route: 048
  19. CARBOPLATIN. [Suspect]
     Active Substance: CARBOPLATIN
     Dosage: AUC 5 MG/ML/MIN
     Route: 042
     Dates: start: 20160726
  20. ETOPOSIDE. [Suspect]
     Active Substance: ETOPOSIDE
     Indication: SMALL CELL LUNG CANCER
     Dosage: 100 MG/M2, UNK
     Route: 042
     Dates: start: 20160705
  21. ETOPOSIDE. [Suspect]
     Active Substance: ETOPOSIDE
     Dosage: 100 MG/M2, UNK
     Route: 042
     Dates: start: 20160816
  22. MEDI4736 [Suspect]
     Active Substance: DURVALUMAB
     Dosage: 1.5 G, ONCE EVERY 4 WEEKS
     Route: 042
     Dates: start: 20160816
  23. RAMOSETRON HCL [Concomitant]
     Indication: PROPHYLAXIS
     Dosage: 0.30MGQD
     Route: 042
     Dates: start: 20160705
  24. LACTULOSE. [Concomitant]
     Active Substance: LACTULOSE
     Indication: CONSTIPATION
     Dosage: 15.00MLTID
     Route: 048
     Dates: start: 20160706
  25. MEGESTROL ACETATE. [Concomitant]
     Active Substance: MEGESTROL ACETATE
     Indication: DECREASED APPETITE
     Dosage: 10.00MLQD
     Route: 048
     Dates: start: 20160722
  26. SIMETHICONE (DIMETHICONE) [Concomitant]
     Active Substance: DIMETHICONE
     Indication: DIARRHOEA
  27. ZOLPIDEM TARTRATE. [Concomitant]
     Active Substance: ZOLPIDEM TARTRATE
     Indication: INSOMNIA
     Dosage: 6.25MGQD
     Route: 048
     Dates: start: 20160831
  28. CARBOPLATIN. [Suspect]
     Active Substance: CARBOPLATIN
     Dosage: AUC 5 MG/ML/MIN
     Route: 042
     Dates: start: 20160816
  29. TREMELIMUMAB. [Suspect]
     Active Substance: TREMELIMUMAB
     Dosage: 1.5 MG, ONCE EVERY 4 WEEKS
     Route: 042
     Dates: start: 20160816
  30. ACETAMINOPHEN. [Concomitant]
     Active Substance: ACETAMINOPHEN
     Dosage: 650.00MGTID
     Route: 048
     Dates: start: 20160715
  31. ALUMINIUM HYDROXIDE W/MAGNESIUM OXIDE/OXETACA [Concomitant]
     Indication: DIARRHOEA
  32. TREMELIMUMAB. [Suspect]
     Active Substance: TREMELIMUMAB
     Dosage: 1.5 MG, ONCE EVERY 4 WEEKS
     Route: 042
     Dates: start: 20160726
  33. CODEINE [Concomitant]
     Active Substance: CODEINE
     Indication: CHEST PAIN
  34. ESOMEPRAZOLE MAGNESIUM. [Concomitant]
     Active Substance: ESOMEPRAZOLE MAGNESIUM
     Indication: DYSPEPSIA
     Dosage: 22.30MGQD
     Route: 048
     Dates: start: 20160823

REACTIONS (2)
  - Neutrophil count decreased [Not Recovered/Not Resolved]
  - Pneumonia [Fatal]

NARRATIVE: CASE EVENT DATE: 20160928
